FAERS Safety Report 5395876-8 (Version None)
Quarter: 2007Q3

REPORT INFORMATION
  Report Type: 
  Country: None (occurrence: None)
  Receive Date: 20070724
  Receipt Date: 20070712
  Transmission Date: 20080115
  Serious: Yes (Hospitalization, Other)
  Sender: FDA-Public Use
  Company Number: US-PFIZER INC-2007036059

PATIENT
  Sex: Male
  Weight: 131.5 kg

DRUGS (10)
  1. CELEBREX [Suspect]
     Indication: RHEUMATOID ARTHRITIS
  2. BEXTRA [Suspect]
     Indication: RHEUMATOID ARTHRITIS
  3. VIOXX [Suspect]
     Indication: RHEUMATOID ARTHRITIS
     Dosage: FREQ:ONCE OR TWICE DAILY AS NEEDED
     Route: 048
  4. VIOXX [Suspect]
     Indication: ARTHRALGIA
  5. VIOXX [Suspect]
     Indication: GOUT
  6. VIOXX [Suspect]
  7. ALLOPURINOL [Concomitant]
     Indication: GOUT
  8. MOBIC [Concomitant]
     Indication: PAIN
     Dates: start: 20001001, end: 20060101
  9. VICODIN [Concomitant]
     Indication: PAIN
     Dates: start: 20001001
  10. TOPROL-XL [Concomitant]
     Indication: HYPERTENSION

REACTIONS (1)
  - CEREBROVASCULAR ACCIDENT [None]
